FAERS Safety Report 10092486 (Version 1)
Quarter: 2014Q2

REPORT INFORMATION
  Report Type: Spontaneous
  Country: US (occurrence: US)
  Receive Date: 20140421
  Receipt Date: 20140421
  Transmission Date: 20141212
  Serious: No
  Sender: FDA-Public Use
  Company Number: US-SANOFI-AVENTIS-2013SA033286

PATIENT
  Sex: Male

DRUGS (4)
  1. ALLEGRA [Suspect]
     Route: 048
  2. ERYTHROMYCIN [Concomitant]
  3. RIFAMPIN [Concomitant]
  4. ZITHROMAX [Concomitant]

REACTIONS (3)
  - Nausea [Not Recovered/Not Resolved]
  - Decreased appetite [Not Recovered/Not Resolved]
  - Feeling abnormal [Not Recovered/Not Resolved]
